FAERS Safety Report 4360211-0 (Version None)
Quarter: 2004Q2

REPORT INFORMATION
  Report Type: 
  Country: None (occurrence: None)
  Receive Date: 20040513
  Receipt Date: 20040429
  Transmission Date: 20050107
  Serious: Yes (Hospitalization)
  Sender: FDA-Public Use
  Company Number: A01200402014

PATIENT
  Age: 75 Year
  Sex: Female

DRUGS (2)
  1. ARIXTRA [Suspect]
     Indication: PHLEBOTHROMBOSIS
     Dosage: 2.5 MG SUBCUTANEOUS
     Route: 058
     Dates: start: 20040415, end: 20040417
  2. ARIXTRA [Suspect]
     Indication: PROPHYLAXIS
     Dosage: 2.5 MG SUBCUTANEOUS
     Route: 058
     Dates: start: 20040415, end: 20040417

REACTIONS (8)
  - ABNORMAL CLOTTING FACTOR [None]
  - DRUG TOXICITY [None]
  - EXANTHEM [None]
  - GENITAL RASH [None]
  - HEPATIC ENZYME INCREASED [None]
  - HEPATOCELLULAR DAMAGE [None]
  - SOMNOLENCE [None]
  - TRANSAMINASES INCREASED [None]
